FAERS Safety Report 11121960 (Version 2)
Quarter: 2016Q2

REPORT INFORMATION
  Report Type: Spontaneous
  Country: FR (occurrence: FR)
  Receive Date: 20150519
  Receipt Date: 20160613
  Transmission Date: 20160815
  Serious: Yes (Other)
  Sender: FDA-Public Use
  Company Number: FR-ACTELION-A-CH2015-117701

PATIENT
  Age: 3 Year
  Sex: Male

DRUGS (1)
  1. ZAVESCA [Suspect]
     Active Substance: MIGLUSTAT
     Indication: NIEMANN-PICK DISEASE
     Dosage: 200 MG, QD
     Route: 048
     Dates: start: 201305, end: 201603

REACTIONS (6)
  - Weight decreased [Unknown]
  - Lactose intolerance [Unknown]
  - Gastroenteritis [Unknown]
  - Condition aggravated [Unknown]
  - Niemann-Pick disease [Unknown]
  - Drug ineffective [Unknown]
